FAERS Safety Report 10051198 (Version 2)
Quarter: 2014Q2

REPORT INFORMATION
  Report Type: Spontaneous
  Country: IL (occurrence: IL)
  Receive Date: 20140401
  Receipt Date: 20140415
  Transmission Date: 20141212
  Serious: Yes (Death, Hospitalization)
  Sender: FDA-Public Use
  Company Number: IL-BRISTOL-MYERS SQUIBB COMPANY-20561122

PATIENT
  Age: 63 Year
  Sex: Male

DRUGS (1)
  1. ELIQUIS [Suspect]

REACTIONS (3)
  - Death [Fatal]
  - International normalised ratio increased [Unknown]
  - Haemoglobin decreased [Unknown]
